FAERS Safety Report 5271291-2 (Version None)
Quarter: 2007Q1

REPORT INFORMATION
  Report Type: 
  Country: None (occurrence: None)
  Receive Date: 20061214
  Receipt Date: 20060602
  Transmission Date: 20070707
  Serious: Yes (Hospitalization, Other)
  Sender: FDA-Public Use
  Company Number: 2006069473

PATIENT
  Age: 67 Year
  Sex: Male
  Weight: 108.8633 kg

DRUGS (1)
  1. BEXTRA [Suspect]
     Indication: MUSCULOSKELETAL PAIN
     Dosage: 20 MG (20 MG,1 IN 1 D)
     Dates: start: 20020714

REACTIONS (2)
  - BLOOD CHOLESTEROL INCREASED [None]
  - MYOCARDIAL INFARCTION [None]
